FAERS Safety Report 14224610 (Version 1)
Quarter: 2017Q4

REPORT INFORMATION
  Report Type: Spontaneous
  Country: US (occurrence: US)
  Receive Date: 20171127
  Receipt Date: 20171127
  Transmission Date: 20180321
  Serious: No
  Sender: FDA-Public Use
  Company Number: US-TEVA-760784USA

PATIENT
  Age: 80 Year
  Sex: Female

DRUGS (2)
  1. CILOSTAZOL. [Suspect]
     Active Substance: CILOSTAZOL
  2. CILOSTAZOL. [Suspect]
     Active Substance: CILOSTAZOL
     Dosage: ONE TABLET TWICE A DAY

REACTIONS (3)
  - Diarrhoea [Recovered/Resolved]
  - Palpitations [Unknown]
  - Weight decreased [Not Recovered/Not Resolved]

NARRATIVE: CASE EVENT DATE: 2016
